FAERS Safety Report 6306451-2 (Version None)
Quarter: 2009Q3

REPORT INFORMATION
  Report Type: 
  Country: None (occurrence: None)
  Receive Date: 20090812
  Receipt Date: 20090807
  Transmission Date: 20100115
  Serious: Yes (Life-Threatening, Hospitalization)
  Sender: FDA-Public Use
  Company Number: BG-B.I. PHARMACEUTICALS,INC./RIDGEFIELD-2009-AP-00191AP

PATIENT
  Sex: Male
  Weight: 101 kg

DRUGS (1)
  1. TELMISARTAN+AMLODIPINE [Suspect]
     Indication: HYPERTENSION
     Dosage: TELMISARTAN 80 MG, AMLODIPINE 10MG
     Route: 048

REACTIONS (1)
  - ISCHAEMIC STROKE [None]
